FAERS Safety Report 9356018 (Version 1)
Quarter: 2013Q2

REPORT INFORMATION
  Report Type: Spontaneous
  Country: CA (occurrence: CA)
  Receive Date: 20130619
  Receipt Date: 20130619
  Transmission Date: 20140414
  Serious: Yes (Hospitalization)
  Sender: FDA-Public Use
  Company Number: CA-ELI_LILLY_AND_COMPANY-CA201305004582

PATIENT
  Age: 78 Year
  Sex: Female

DRUGS (8)
  1. FORTEO [Suspect]
     Indication: OSTEOPOROSIS
     Dosage: 20 UG, QD
     Route: 058
     Dates: start: 20111121, end: 20120501
  2. FORTEO [Suspect]
     Dosage: 20 UG, QD
     Route: 058
     Dates: start: 201210, end: 20130508
  3. VITAMIN D [Concomitant]
  4. NAPROSYN [Concomitant]
  5. IBUPROFEN [Concomitant]
  6. AMOXICILLIN [Concomitant]
     Dosage: 500 MG, UNK
     Dates: start: 20130426
  7. METRONIDAZOLE [Concomitant]
     Dosage: 500 MG, UNK
     Dates: start: 20130426
  8. PROLIA [Concomitant]
     Dosage: UNK
     Dates: start: 20130429

REACTIONS (5)
  - Clostridium difficile infection [Recovering/Resolving]
  - Asthenia [Not Recovered/Not Resolved]
  - Dizziness [Not Recovered/Not Resolved]
  - Diarrhoea [Not Recovered/Not Resolved]
  - Nausea [Not Recovered/Not Resolved]
